FAERS Safety Report 8281290-4 (Version None)
Quarter: 2012Q2

REPORT INFORMATION
  Report Type: 
  Country: None (occurrence: None)
  Receive Date: 20120410
  Receipt Date: 20120410
  Transmission Date: 20120825
  Serious: No
  Sender: FDA-Public Use
  Company Number: None

PATIENT

DRUGS (3)
  1. VYTORIN [Suspect]
     Dosage: TABLET
     Route: 048
  2. ZETIA [Suspect]
     Dosage: TABLET
     Route: 048
  3. ZOCOR [Suspect]
     Dosage: TABLET
     Route: 048

REACTIONS (2)
  - MEDICATION ERROR [None]
  - DRUG PRESCRIBING ERROR [None]
